FAERS Safety Report 5961145-8 (Version None)
Quarter: 2008Q4

REPORT INFORMATION
  Report Type: 
  Country: None (occurrence: None)
  Receive Date: 20081119
  Receipt Date: 20081104
  Transmission Date: 20090506
  Serious: Yes (Other)
  Sender: FDA-Public Use
  Company Number: DSU-2008-01866

PATIENT
  Sex: Female
  Weight: 76.6579 kg

DRUGS (4)
  1. BENICAR [Suspect]
     Indication: HYPERTENSION
     Dosage: 40 MG (40 MG, QD)
     Dates: start: 20081001, end: 20081101
  2. NORVASC [Suspect]
     Dosage: 5 MG (5 MG, QD)
     Dates: start: 20060101, end: 20081101
  3. THYROXINE (LEVOTHYROXINE SODIUM) (LEVOTHYROXINE SODIUM) [Concomitant]
  4. BISOPROLOL/HYDROCHLOROTHIAZIDE (HYDROCHLOROTHIAZIDE, BISOPROLOL) (HYDR [Concomitant]

REACTIONS (3)
  - CONDITION AGGRAVATED [None]
  - MUSCLE SPASMS [None]
  - THERAPEUTIC RESPONSE UNEXPECTED [None]
